FAERS Safety Report 12921007 (Version 1)
Quarter: 2016Q4

REPORT INFORMATION
  Report Type: Spontaneous
  Country: US (occurrence: US)
  Receive Date: 20161108
  Receipt Date: 20161108
  Transmission Date: 20170207
  Serious: Yes (Hospitalization)
  Sender: FDA-Public Use
  Company Number: None

PATIENT
  Age: 69 Year
  Sex: Male
  Weight: 92.4 kg

DRUGS (1)
  1. CARVEDILOL. [Suspect]
     Active Substance: CARVEDILOL
     Indication: ACUTE MYOCARDIAL INFARCTION
     Route: 048
     Dates: start: 20160429, end: 20160913

REACTIONS (5)
  - Dizziness [None]
  - Atrioventricular block first degree [None]
  - Hyponatraemia [None]
  - Mental status changes [None]
  - Abdominal pain [None]

NARRATIVE: CASE EVENT DATE: 20160913
